FAERS Safety Report 6775297-3 (Version None)
Quarter: 2010Q2

REPORT INFORMATION
  Report Type: 
  Country: None (occurrence: None)
  Receive Date: 20100617
  Receipt Date: 20100608
  Transmission Date: 20101027
  Serious: Yes (Hospitalization)
  Sender: FDA-Public Use
  Company Number: US-PERRIGO-10US010280

PATIENT
  Age: 46 Year
  Sex: Female

DRUGS (2)
  1. NAPROXEN SODIUM [Suspect]
     Indication: BACK PAIN
     Dosage: 200 MG, BID
     Route: 048
  2. METHADONE [Concomitant]
     Indication: BACK PAIN
     Dosage: 10 MG, TID
     Route: 048

REACTIONS (7)
  - ABDOMINAL PAIN LOWER [None]
  - CONSTIPATION [None]
  - INTESTINAL DIAPHRAGM DISEASE [None]
  - INTESTINAL OBSTRUCTION [None]
  - NAUSEA [None]
  - TACHYCARDIA [None]
  - VOMITING [None]
